FAERS Safety Report 11391997 (Version 6)
Quarter: 2017Q3

REPORT INFORMATION
  Report Type: Report from Study
  Country: DK (occurrence: DK)
  Receive Date: 20150818
  Receipt Date: 20170926
  Transmission Date: 20171127
  Serious: Yes (Hospitalization)
  Sender: FDA-Public Use
  Company Number: DK-JNJFOC-20150807366

PATIENT
  Age: 16 Year
  Sex: Male
  Weight: 64.3 kg

DRUGS (3)
  1. REMICADE [Suspect]
     Active Substance: INFLIXIMAB
     Indication: CROHN^S DISEASE
     Route: 042
     Dates: start: 20150309, end: 20150309
  2. REMICADE [Suspect]
     Active Substance: INFLIXIMAB
     Indication: CROHN^S DISEASE
     Route: 042
     Dates: start: 20110617, end: 20150401
  3. HUMIRA [Concomitant]
     Active Substance: ADALIMUMAB
     Route: 065
     Dates: start: 20150503

REACTIONS (2)
  - Impaired healing [Recovered/Resolved with Sequelae]
  - Limb injury [Recovered/Resolved]

NARRATIVE: CASE EVENT DATE: 20150606
